FAERS Safety Report 15607843 (Version 2)
Quarter: 2019Q1

REPORT INFORMATION
  Report Type: Report from Study
  Country: DE (occurrence: DE)
  Receive Date: 20181112
  Receipt Date: 20190212
  Transmission Date: 20190417
  Serious: Yes (Hospitalization)
  Sender: FDA-Public Use
  Company Number: DE-ROCHE-2211506

PATIENT
  Age: 76 Year
  Sex: Female

DRUGS (9)
  1. METAMIZOL [Concomitant]
     Active Substance: METAMIZOLE SODIUM
  2. TORASEMIDE [Concomitant]
     Active Substance: TORSEMIDE
     Route: 065
  3. VALSACOR [Concomitant]
     Active Substance: VALSARTAN
  4. TOCILIZUMAB. [Suspect]
     Active Substance: TOCILIZUMAB
     Indication: RHEUMATOID ARTHRITIS
     Route: 058
  5. FERROSANOL [Concomitant]
     Active Substance: FERROUS GLUCONATE
  6. PANTOPRAZOL [Concomitant]
     Active Substance: PANTOPRAZOLE SODIUM
  7. RESTEX [Concomitant]
     Active Substance: BENSERAZIDE\LEVODOPA
  8. PREDNISOLONE. [Concomitant]
     Active Substance: PREDNISOLONE
  9. DEKRISTOL [Concomitant]
     Active Substance: CHOLECALCIFEROL

REACTIONS (1)
  - Basal cell carcinoma [Recovered/Resolved]

NARRATIVE: CASE EVENT DATE: 201808
